FAERS Safety Report 5378725-3 (Version None)
Quarter: 2007Q3

REPORT INFORMATION
  Report Type: 
  Country: None (occurrence: None)
  Receive Date: 20070705
  Receipt Date: 20070629
  Transmission Date: 20080115
  Serious: Yes (Other)
  Sender: FDA-Public Use
  Company Number: B0473582A

PATIENT
  Age: 59 Year
  Sex: Female
  Weight: 42 kg

DRUGS (7)
  1. VALTREX [Suspect]
     Indication: HERPES ZOSTER
     Dosage: 1000MG THREE TIMES PER DAY
     Route: 048
     Dates: start: 20070529, end: 20070531
  2. NOVORAPID [Concomitant]
     Indication: DIABETES MELLITUS
     Route: 058
     Dates: start: 20041228
  3. NILVADIPINE [Concomitant]
     Indication: HYPERTENSION
     Dosage: 4MG PER DAY
     Route: 048
     Dates: start: 20041224
  4. ZOVIRAX [Concomitant]
     Dosage: 100MG PER DAY
     Route: 061
     Dates: start: 20041215
  5. ASPIRIN [Concomitant]
     Indication: CEREBRAL INFARCTION
     Dosage: 100MG PER DAY
     Route: 048
  6. HUMACART [Concomitant]
     Indication: DIABETES MELLITUS
     Dosage: 6IU PER DAY
     Route: 058
     Dates: start: 20050107
  7. SOLDEM 3A [Concomitant]
     Dosage: 200ML UNKNOWN

REACTIONS (6)
  - BLOOD PRESSURE INCREASED [None]
  - DYSPNOEA [None]
  - FLUSHING [None]
  - MYOCARDIAL ISCHAEMIA [None]
  - PALPITATIONS [None]
  - SINUS TACHYCARDIA [None]
